FAERS Safety Report 7212246-8 (Version None)
Quarter: 2010Q4

REPORT INFORMATION
  Report Type: 
  Country: None (occurrence: None)
  Receive Date: 20101227
  Receipt Date: 20101216
  Transmission Date: 20110411
  Serious: Yes (Life-Threatening)
  Sender: FDA-Public Use
  Company Number: 2010JP007068

PATIENT
  Age: 54 Year
  Sex: Male
  Weight: 63.2 kg

DRUGS (19)
  1. FUNGUARD (MICAFUNGIN) INJECTION [Suspect]
     Indication: FUNGAL PERITONITIS
     Dosage: 150 MG, UID/QD, IV DRIP
     Route: 041
     Dates: start: 20101010, end: 20101101
  2. GASPORT (FAMOTIDINE) INJECTION [Suspect]
     Indication: GASTRITIS
     Dosage: 20 MG, UID/QD, IV NOS
     Route: 042
     Dates: start: 20101018, end: 20101101
  3. LACTULOSE (LACTULOSE) SYRUP [Concomitant]
  4. NORVASC (AMLODIPINE BESILATE) ORODISPERSIBLE CR TABLET [Concomitant]
  5. MUCOSTA (REBAMIPIDE) PER ORAL NOS [Concomitant]
  6. OLMETEC (OLMESARTAN MEDOXOMIL) PER ORAL NOS [Concomitant]
  7. CALTAN (CALCIUM CARBONATE) PER ORAL NOS [Concomitant]
  8. RENAGEL (SEVELAMER HYDROCHLORIDE) PER ORAL NOS [Concomitant]
  9. SENNOSIDE (SENNOSIDE A+B) PER ORAL NOS [Concomitant]
  10. ALFAROL (ALFACALCIDOL) PER ORAL NOS [Concomitant]
  11. PLAVIX (CLOPIDOGREL SULFATE) PER ORAL NOS [Concomitant]
  12. CARDENALIN (DOXAZOSIN MESILATE) PER ORAL NOS [Concomitant]
  13. CINACALCET HYDROCHLORIDE (CINACALCET HYDROCHLORIDE) PER ORAL NOS [Concomitant]
  14. ADALAT (NIFEDIPINE) SLOW RELEASE TABLET [Concomitant]
  15. PANTOL (PANTHENOL) INJECTION [Concomitant]
  16. NAUZELIN (DOMPERIDONE) PER ORAL NOS [Concomitant]
  17. BAKUMONDOUTO (HERBAL EXTRACT NOS) PER ORAL NOS [Concomitant]
  18. CODEINE PHOSPHATE (CODEINE PHOSPHATE) PER ORAL NOS [Concomitant]
  19. MASHI-NIN-GAN (CHINESE HERBAL MEDICINE) PER ORAL NOS [Concomitant]

REACTIONS (1)
  - AGRANULOCYTOSIS [None]
